FAERS Safety Report 9160095 (Version 2)
Quarter: 2013Q2

REPORT INFORMATION
  Report Type: Spontaneous
  Country: US (occurrence: US)
  Receive Date: 20130313
  Receipt Date: 20130423
  Transmission Date: 20140414
  Serious: No
  Sender: FDA-Public Use
  Company Number: US-ASTRAZENECA-2013SE14556

PATIENT
  Age: 15 Year
  Sex: Male
  Weight: 67.1 kg

DRUGS (6)
  1. PULMICORT FLEXHALER [Suspect]
     Indication: ASTHMA
     Dosage: 1 PUFF DAILY
     Route: 055
     Dates: start: 2011
  2. PULMICORT FLEXHALER [Suspect]
     Indication: ASTHMA
     Dosage: TWICE DAILY
     Route: 055
  3. PULMICORT FLEXHALER [Suspect]
     Indication: ASTHMA
     Dosage: 180 MCG 1 PUFF DAILY
     Route: 055
  4. VENTOLIN [Concomitant]
     Indication: ASTHMA
     Dosage: PRN
     Route: 055
     Dates: start: 1997
  5. MULTIVITAMIN [Concomitant]
     Dosage: DAILY
     Route: 048
     Dates: start: 1997
  6. FISH OIL [Concomitant]
     Indication: HIGH DENSITY LIPOPROTEIN DECREASED
     Dosage: 1000 MG
     Route: 048
     Dates: start: 2011

REACTIONS (2)
  - Wheezing [Unknown]
  - Off label use [Unknown]
